FAERS Safety Report 14553590 (Version 1)
Quarter: 2018Q1

REPORT INFORMATION
  Report Type: Spontaneous
  Country: US (occurrence: US)
  Receive Date: 20180220
  Receipt Date: 20180220
  Transmission Date: 20180509
  Serious: No
  Sender: FDA-Public Use
  Company Number: US-FERRINGPH-2017FE03164

PATIENT
  Age: 36 Year
  Sex: Female
  Weight: 70.75 kg

DRUGS (5)
  1. LUPRON [Concomitant]
     Active Substance: LEUPROLIDE ACETATE
     Indication: IN VITRO FERTILISATION
     Route: 065
  2. OVIDREL [Suspect]
     Active Substance: CHORIOGONADOTROPIN ALFA
     Indication: OVULATION INDUCTION
     Dosage: UNK
     Route: 065
     Dates: start: 20170515, end: 20170515
  3. FOLLISTIM [Concomitant]
     Active Substance: FOLLITROPIN
     Indication: IN VITRO FERTILISATION
     Route: 065
  4. MENOPUR [Concomitant]
     Active Substance: FOLLITROPIN\LUTEINIZING HORMONE
     Indication: IN VITRO FERTILISATION
     Route: 065
  5. NOVAREL [Suspect]
     Active Substance: CHORIOGONADOTROPIN ALFA
     Indication: OVULATION INDUCTION
     Dosage: 3333 IU, ONCE/SINGLE
     Route: 030
     Dates: start: 20170513, end: 20170514

REACTIONS (3)
  - Product quality issue [Unknown]
  - Drug ineffective [Recovered/Resolved]
  - Underdose [Recovered/Resolved]

NARRATIVE: CASE EVENT DATE: 2017
